FAERS Safety Report 13749493 (Version 1)
Quarter: 2017Q3

REPORT INFORMATION
  Report Type: Spontaneous
  Country: US (occurrence: US)
  Receive Date: 20170713
  Receipt Date: 20170713
  Transmission Date: 20171127
  Serious: No
  Sender: FDA-Public Use
  Company Number: None

PATIENT
  Sex: Male

DRUGS (1)
  1. STIVARGA [Suspect]
     Active Substance: REGORAFENIB
     Indication: COLON CANCER
     Dosage: FREQUENCY - DAILY FOR 21 DAYS AND OFF 7 DAYS
     Route: 048
     Dates: start: 20170613

REACTIONS (3)
  - Somnolence [None]
  - Fatigue [None]
  - Asthenia [None]
